FAERS Safety Report 8840912 (Version 1)
Quarter: 2012Q4

REPORT INFORMATION
  Report Type: 
  Country: CN (occurrence: CN)
  Receive Date: 20121015
  Receipt Date: 20121015
  Transmission Date: 20130627
  Serious: Yes (Other)
  Sender: FDA-Public Use
  Company Number: CN-ROCHE-1144896

PATIENT

DRUGS (2)
  1. AVASTIN [Suspect]
     Indication: CHOROIDAL NEOVASCULARISATION
     Route: 050
  2. LEVOFLOXACIN [Concomitant]
     Dosage: qid, 1 week after each injection
     Route: 065

REACTIONS (1)
  - Cataract [Unknown]
